FAERS Safety Report 7073559-6 (Version None)
Quarter: 2010Q4

REPORT INFORMATION
  Report Type: 
  Country: None (occurrence: None)
  Receive Date: 20101029
  Receipt Date: 20100709
  Transmission Date: 20110411
  Serious: No
  Sender: FDA-Public Use
  Company Number: A0869489A

PATIENT
  Age: 77 Year
  Sex: Female

DRUGS (7)
  1. ADVAIR DISKUS 100/50 [Suspect]
     Indication: CHRONIC OBSTRUCTIVE PULMONARY DISEASE
     Dosage: 1PUFF TWICE PER DAY
     Route: 055
     Dates: start: 20090101
  2. ADVAIR DISKUS 100/50 [Suspect]
     Dosage: 1PUFF TWICE PER DAY
     Route: 055
     Dates: start: 20100301
  3. COUGH DROP [Concomitant]
  4. CENTRUM SILVER [Concomitant]
  5. CITRACAL [Concomitant]
  6. LISINOPRIL [Concomitant]
  7. SIMVASTATIN [Concomitant]

REACTIONS (9)
  - ADVERSE DRUG REACTION [None]
  - BONE PAIN [None]
  - DRUG ADMINISTRATION ERROR [None]
  - DYSPHONIA [None]
  - FATIGUE [None]
  - IMPAIRED WORK ABILITY [None]
  - INCREASED UPPER AIRWAY SECRETION [None]
  - MYALGIA [None]
  - THROAT IRRITATION [None]
